FAERS Safety Report 17952854 (Version 2)
Quarter: 2020Q2

REPORT INFORMATION
  Report Type: Report from Study
  Country: NL (occurrence: NL)
  Receive Date: 20200627
  Receipt Date: 20200630
  Transmission Date: 20200714
  Serious: Yes (Hospitalization)
  Sender: FDA-Public Use
  Company Number: NL-ROCHE-2628550

PATIENT
  Age: 66 Year
  Sex: Male

DRUGS (2)
  1. OSIMERTINIB. [Suspect]
     Active Substance: OSIMERTINIB
     Indication: NON-SMALL CELL LUNG CANCER
     Dosage: MOST RECENT DOSE OF OSIMERTINIB WAS RECEIVED ON 09/JUN/2020
     Route: 048
     Dates: start: 20190426
  2. TRASTUZUMAB EMTANSINE [Suspect]
     Active Substance: ADO-TRASTUZUMAB EMTANSINE
     Indication: NON-SMALL CELL LUNG CANCER
     Dosage: MOST RECENT DOSE OF TRASTUZUMAB EMTANSINE WAS RECEIVED ON 09/JUN/2020
     Route: 042
     Dates: start: 20190426

REACTIONS (1)
  - Fracture [Not Recovered/Not Resolved]

NARRATIVE: CASE EVENT DATE: 20200619
